FAERS Safety Report 4819093-2 (Version None)
Quarter: 2005Q4

REPORT INFORMATION
  Report Type: 
  Country: None (occurrence: None)
  Receive Date: 20051103
  Receipt Date: 20051020
  Transmission Date: 20060501
  Serious: Yes (Other)
  Sender: FDA-Public Use
  Company Number: 2005GB02039

PATIENT

DRUGS (7)
  1. SEROQUEL [Suspect]
     Indication: DEMENTIA
     Route: 048
     Dates: start: 20051001
  2. SEROQUEL [Suspect]
     Indication: CONFUSIONAL STATE
     Route: 048
     Dates: start: 20051001
  3. SEROQUEL [Suspect]
     Indication: ABNORMAL BEHAVIOUR
     Route: 048
     Dates: start: 20051001
  4. SIMVASTATIN [Concomitant]
     Dosage: HAS BEEN TAKING FOR A LONG TIME WITH NO PROBLEMS
  5. SPIRONOLACTONE [Concomitant]
     Dosage: HAS BEEN TAKING FOR A LONG TIME WITH NO PROBLEMS
  6. LORAZEPAM [Concomitant]
     Dosage: HAS BEEN TAKING FOR A LONG TIME WITH NO PROBLEMS
  7. FRUSEMIDE [Concomitant]
     Dosage: HAS BEEN TAKING FOR A LONG TIME WITH NO PROBLEMS

REACTIONS (1)
  - IDIOPATHIC THROMBOCYTOPENIC PURPURA [None]
